FAERS Safety Report 8838397 (Version 1)
Quarter: 2012Q4

REPORT INFORMATION
  Report Type: 
  Country: HR (occurrence: HR)
  Receive Date: 20121012
  Receipt Date: 20121012
  Transmission Date: 20130627
  Serious: Yes (Other)
  Sender: FDA-Public Use
  Company Number: PHHY2012HR086800

PATIENT
  Age: 42 Year
  Sex: Male

DRUGS (2)
  1. XORIMAX [Suspect]
     Indication: URINARY TRACT DISORDER
     Dosage: 2 DF per day
     Route: 048
     Dates: start: 20120802, end: 20120810
  2. ZALDIAR [Suspect]
     Indication: URETHRITIS
     Dosage: 3 DF a day
     Route: 048
     Dates: start: 20120802, end: 20120810

REACTIONS (5)
  - Hepatitis toxic [Recovered/Resolved]
  - Fatigue [Recovered/Resolved]
  - Hepatic enzyme increased [Recovered/Resolved]
  - Drug-induced liver injury [Recovered/Resolved]
  - Hepatocellular injury [Recovered/Resolved]
